FAERS Safety Report 10028692 (Version 1)
Quarter: 2014Q1

REPORT INFORMATION
  Report Type: Spontaneous
  Country: AU (occurrence: AU)
  Receive Date: 20140321
  Receipt Date: 20140321
  Transmission Date: 20141002
  Serious: Yes (Other)
  Sender: FDA-Public Use
  Company Number: AU-ABBVIE-14P-008-1214009-00

PATIENT
  Age: 4 Year
  Sex: Female

DRUGS (1)
  1. VALPROIC ACID [Suspect]
     Indication: COMPLEX PARTIAL SEIZURES

REACTIONS (2)
  - Disease progression [Unknown]
  - Convulsion [Unknown]
